FAERS Safety Report 15597348 (Version 1)
Quarter: 2018Q4

REPORT INFORMATION
  Report Type: Spontaneous
  Country: US (occurrence: US)
  Receive Date: 20181102
  Receipt Date: 20181102
  Transmission Date: 20190205
  Serious: No
  Sender: FDA-Public Use
  Company Number: None

PATIENT
  Age: 51 Year
  Sex: Female

DRUGS (4)
  1. ZOLMITRIPTAN. [Concomitant]
     Active Substance: ZOLMITRIPTAN
  2. AIMOVIG [Concomitant]
     Active Substance: ERENUMAB-AOOE
  3. ENBREL [Suspect]
     Active Substance: ETANERCEPT
     Route: 058
     Dates: start: 20180215
  4. ESTRADIOL. [Concomitant]
     Active Substance: ESTRADIOL

REACTIONS (2)
  - Injection site swelling [None]
  - Injection site pruritus [None]

NARRATIVE: CASE EVENT DATE: 20181004
